FAERS Safety Report 4954613-9 (Version None)
Quarter: 2006Q1

REPORT INFORMATION
  Report Type: 
  Country: None (occurrence: None)
  Receive Date: 20060327
  Receipt Date: 20060316
  Transmission Date: 20060701
  Serious: Yes (Other)
  Sender: FDA-Public Use
  Company Number: BR-ROCHE-440725

PATIENT
  Age: 35 Year
  Sex: Female
  Weight: 53 kg

DRUGS (3)
  1. ROACUTAN [Suspect]
     Indication: ACNE
     Route: 048
     Dates: start: 20041015
  2. ROACUTAN [Suspect]
     Route: 048
     Dates: end: 20051210
  3. PENTOSAN POLYSULFATE SODIUM [Concomitant]
     Dosage: DRUG REPORTED AS: FIBRASE.
     Route: 061
     Dates: start: 20060226, end: 20060315

REACTIONS (4)
  - DRUG EXPOSURE DURING PREGNANCY [None]
  - NO ADVERSE EFFECT [None]
  - PREGNANCY [None]
  - TREATMENT NONCOMPLIANCE [None]
